FAERS Safety Report 5177121-1 (Version None)
Quarter: 2006Q4

REPORT INFORMATION
  Report Type: 
  Country: None (occurrence: None)
  Receive Date: 20061207
  Receipt Date: 20061121
  Transmission Date: 20070319
  Serious: Yes (Other)
  Sender: FDA-Public Use
  Company Number: JPI-P-000142

PATIENT
  Age: 64 Year
  Sex: Female
  Weight: 70.3075 kg

DRUGS (12)
  1. XYREM [Suspect]
     Indication: CATAPLEXY
     Dosage: SEE IMAGE, ORAL
     Route: 048
     Dates: end: 20060101
  2. XYREM [Suspect]
     Indication: CATAPLEXY
     Dosage: SEE IMAGE, ORAL
     Route: 048
     Dates: start: 20060101
  3. FEXOFENADINE [Concomitant]
  4. HYDROCHLOROTHIAZIDE [Concomitant]
  5. LISINOPRIL [Concomitant]
  6. AMLODIPINE [Concomitant]
  7. GABAPENTIN [Concomitant]
  8. INSULIN HUMAN [Concomitant]
  9. DEFLAZACORT [Concomitant]
  10. POTASSIUM CHLORIDE [Concomitant]
  11. PRAMIPEXOLE DIHYDROCHLORIDE [Concomitant]
  12. LEVOCARNITINE [Concomitant]

REACTIONS (9)
  - ANOREXIA [None]
  - BLOOD POTASSIUM DECREASED [None]
  - BLOOD PRESSURE FLUCTUATION [None]
  - CONFUSIONAL STATE [None]
  - DIZZINESS [None]
  - HEART RATE DECREASED [None]
  - NAUSEA [None]
  - SOMNOLENCE [None]
  - WEIGHT DECREASED [None]
